FAERS Safety Report 7323391-0 (Version None)
Quarter: 2011Q1

REPORT INFORMATION
  Report Type: 
  Country: None (occurrence: None)
  Receive Date: 20110301
  Receipt Date: 20110222
  Transmission Date: 20110831
  Serious: Yes (Other)
  Sender: FDA-Public Use
  Company Number: US-SANOFI-AVENTIS-2011SA012066

PATIENT
  Age: 78 Year
  Sex: Female

DRUGS (3)
  1. LANTUS [Suspect]
     Dosage: DOSE:15 UNIT(S)
     Route: 058
  2. LANTUS [Suspect]
     Indication: DIABETES MELLITUS
     Dosage: 25UNITS IN THE MORNING AND 15 INTHE EVENING
     Route: 058
  3. HUMULIN R [Concomitant]

REACTIONS (9)
  - HYPOGLYCAEMIA [None]
  - MACULAR HOLE [None]
  - TREMOR [None]
  - CATARACT [None]
  - VISUAL IMPAIRMENT [None]
  - VISION BLURRED [None]
  - EXPIRED DRUG ADMINISTERED [None]
  - BLOOD GLUCOSE INCREASED [None]
  - GLYCOSYLATED HAEMOGLOBIN INCREASED [None]
